FAERS Safety Report 8066759-X (Version None)
Quarter: 2012Q1

REPORT INFORMATION
  Report Type: 
  Country: None (occurrence: None)
  Receive Date: 20120117
  Receipt Date: 20120106
  Transmission Date: 20120608
  Serious: Yes (Other)
  Sender: FDA-Public Use
  Company Number: 2012AP000089

PATIENT
  Age: 74 Year
  Sex: Female

DRUGS (7)
  1. TRIMETHOPRIM [Concomitant]
  2. PROCHLORPERAZINE [Concomitant]
  3. HUMALOG [Concomitant]
  4. SUDOCREM [Concomitant]
  5. AMLODIPINE [Suspect]
     Indication: PRODUCT USED FOR UNKNOWN INDICATION
     Dates: start: 20111122
  6. CLOTRIMAZOLE [Concomitant]
  7. RAMIPRIL [Concomitant]

REACTIONS (2)
  - VISION BLURRED [None]
  - DIZZINESS [None]
